FAERS Safety Report 5255632-8 (Version None)
Quarter: 2007Q1

REPORT INFORMATION
  Report Type: 
  Country: None (occurrence: None)
  Receive Date: 20070305
  Receipt Date: 20070221
  Transmission Date: 20070707
  Serious: Yes (Hospitalization, Other)
  Sender: FDA-Public Use
  Company Number: US-PFIZER INC-2007003785

PATIENT
  Sex: Female
  Weight: 66.2 kg

DRUGS (9)
  1. LYRICA [Suspect]
     Indication: NEUROPATHY
     Dates: start: 20060101, end: 20060101
  2. CELEBREX [Suspect]
     Indication: ARTHRITIS
  3. CELEBREX [Suspect]
     Indication: NEUROPATHY
  4. CELEBREX [Suspect]
     Indication: INFLAMMATION
  5. LIPITOR [Concomitant]
  6. BENICAR [Concomitant]
  7. WELLBUTRIN [Concomitant]
  8. LEXAPRO [Concomitant]
  9. ARIMIDEX [Concomitant]

REACTIONS (10)
  - ABNORMAL BEHAVIOUR [None]
  - ANAEMIA [None]
  - CEREBROVASCULAR ACCIDENT [None]
  - DRUG INEFFECTIVE [None]
  - INFLAMMATION [None]
  - MASS [None]
  - MOOD ALTERED [None]
  - PARANOIA [None]
  - RHEUMATOID ARTHRITIS [None]
  - TREMOR [None]
